FAERS Safety Report 4475260-1 (Version None)
Quarter: 2004Q4

REPORT INFORMATION
  Report Type: 
  Country: None (occurrence: None)
  Receive Date: 20041015
  Receipt Date: 20041001
  Transmission Date: 20050328
  Serious: Yes (Hospitalization)
  Sender: FDA-Public Use
  Company Number: DE-JNJFOC-20041000740

PATIENT
  Sex: Male

DRUGS (3)
  1. RISPERDAL [Suspect]
     Indication: MANIA
     Route: 049
  2. ERGENYL CHRONO [Suspect]
     Route: 049
  3. ERGENYL CHRONO [Suspect]
     Indication: PROPHYLAXIS
     Route: 049

REACTIONS (1)
  - ADVERSE EVENT [None]
